FAERS Safety Report 23183848 (Version 2)
Quarter: 2023Q4

REPORT INFORMATION
  Report Type: Spontaneous
  Country: BR (occurrence: BR)
  Receive Date: 20231114
  Receipt Date: 20231214
  Transmission Date: 20240110
  Serious: Yes (Other)
  Sender: FDA-Public Use
  Company Number: BR-002147023-NVSC2023BR074792

PATIENT
  Age: 70 Year
  Sex: Female

DRUGS (8)
  1. KISQALI [Suspect]
     Active Substance: RIBOCICLIB
     Dosage: 2 DOSAGE FORM
     Route: 065
     Dates: start: 20230529
  2. KISQALI [Suspect]
     Active Substance: RIBOCICLIB
     Dosage: 2 DOSAGE FORM
     Route: 065
  3. KISQALI [Suspect]
     Active Substance: RIBOCICLIB
     Dosage: 2 DOSAGE FORM
     Route: 065
     Dates: start: 20230406
  4. KISQALI [Suspect]
     Active Substance: RIBOCICLIB
     Dosage: 2 DOSAGE FORM (A DAY)
     Route: 065
  5. KISQALI [Suspect]
     Active Substance: RIBOCICLIB
     Dosage: 3 DOSAGE FORM
     Route: 065
     Dates: start: 20230314
  6. KISQALI [Suspect]
     Active Substance: RIBOCICLIB
     Dosage: 3 DOSAGE FORM
     Route: 065
  7. KISQALI [Suspect]
     Active Substance: RIBOCICLIB
     Indication: Breast cancer
     Dosage: UNK
     Route: 065
  8. ZOMETA [Suspect]
     Active Substance: ZOLEDRONIC ACID
     Indication: Product used for unknown indication
     Dosage: UNK
     Route: 065

REACTIONS (43)
  - Breast cancer recurrent [Unknown]
  - Retching [Recovered/Resolved]
  - Cold sweat [Recovered/Resolved]
  - Visual impairment [Recovered/Resolved]
  - Sluggishness [Unknown]
  - Presyncope [Unknown]
  - Somnolence [Unknown]
  - Hyperhidrosis [Unknown]
  - Ocular hyperaemia [Unknown]
  - Nodule [Recovered/Resolved]
  - Musculoskeletal chest pain [Unknown]
  - Head discomfort [Recovering/Resolving]
  - Oral pain [Unknown]
  - Febrile infection [Unknown]
  - Feeling cold [Unknown]
  - Stiff leg syndrome [Unknown]
  - Stomatitis [Unknown]
  - Alopecia [Not Recovered/Not Resolved]
  - Decreased appetite [Not Recovered/Not Resolved]
  - Back pain [Not Recovered/Not Resolved]
  - Tremor [Recovering/Resolving]
  - Pain [Recovered/Resolved]
  - Ocular vascular disorder [Unknown]
  - Hair growth abnormal [Not Recovered/Not Resolved]
  - Muscle spasms [Recovered/Resolved]
  - Insomnia [Unknown]
  - Tinnitus [Unknown]
  - Feeling hot [Unknown]
  - Nasopharyngitis [Unknown]
  - Pain in extremity [Recovered/Resolved]
  - Abdominal pain upper [Unknown]
  - Asthenia [Not Recovered/Not Resolved]
  - Fatigue [Recovering/Resolving]
  - Vomiting [Unknown]
  - Headache [Recovered/Resolved]
  - Diarrhoea [Unknown]
  - Pyrexia [Unknown]
  - Malaise [Not Recovered/Not Resolved]
  - Nausea [Unknown]
  - Dizziness [Unknown]
  - Chills [Unknown]
  - Memory impairment [Unknown]
  - Confusional state [Unknown]

NARRATIVE: CASE EVENT DATE: 20230313
